FAERS Safety Report 5028227-9 (Version None)
Quarter: 2006Q2

REPORT INFORMATION
  Report Type: 
  Country: None (occurrence: None)
  Receive Date: 20060613
  Receipt Date: 20060525
  Transmission Date: 20061013
  Serious: Yes (Hospitalization)
  Sender: FDA-Public Use
  Company Number: DSA_28251_2006

PATIENT
  Sex: Female

DRUGS (4)
  1. LORAZEPAM [Suspect]
     Dosage: 25 MG ONCE PO
     Route: 048
     Dates: start: 20060524, end: 20060524
  2. PROMETHAZINE HCL [Suspect]
     Dates: start: 20060524, end: 20060524
  3. RITALIN [Suspect]
     Dosage: VAR ONCE PO
     Route: 048
     Dates: start: 20060524, end: 20060524
  4. WINE [Suspect]
     Dosage: 1 BOTTLE ONCE PO
     Route: 048
     Dates: start: 20060524, end: 20060524

REACTIONS (5)
  - ALCOHOL USE [None]
  - MULTIPLE DRUG OVERDOSE [None]
  - SOMNOLENCE [None]
  - SUICIDE ATTEMPT [None]
  - TACHYCARDIA [None]
